FAERS Safety Report 16938684 (Version 5)
Quarter: 2020Q1

REPORT INFORMATION
  Report Type: Report from Study
  Country: CN (occurrence: CN)
  Receive Date: 20191019
  Receipt Date: 20200121
  Transmission Date: 20200409
  Serious: Yes (Death)
  Sender: FDA-Public Use
  Company Number: NVSC2019CN005643

PATIENT
  Sex: Male
  Weight: 54 kg

DRUGS (1)
  1. ENTRESTO [Suspect]
     Active Substance: SACUBITRIL\VALSARTAN
     Indication: PRODUCT USED FOR UNKNOWN INDICATION
     Dosage: 50 MG (SACUBITRIL 24 MG/ VALSARTAN 26 MG), BID
     Route: 048
     Dates: start: 20190818, end: 20190926

REACTIONS (6)
  - Blood calcium decreased [Unknown]
  - Blood sodium decreased [Unknown]
  - Vomiting [Fatal]
  - Blood chloride decreased [Unknown]
  - Nausea [Fatal]
  - N-terminal prohormone brain natriuretic peptide increased [Unknown]
